FAERS Safety Report 8510123-3 (Version None)
Quarter: 2012Q3

REPORT INFORMATION
  Report Type: 
  Country: None (occurrence: None)
  Receive Date: 20120713
  Receipt Date: 20120713
  Transmission Date: 20120928
  Serious: Yes (Hospitalization)
  Sender: FDA-Public Use
  Company Number: JP-009507513-1207JPN003648

PATIENT

DRUGS (3)
  1. JANUVIA [Suspect]
     Indication: BLOOD GLUCOSE ABNORMAL
     Route: 048
     Dates: start: 20120301, end: 20120501
  2. ENALAPRIL MALEATE [Concomitant]
     Dosage: DAILY DOSE UNKNOWN
     Route: 065
     Dates: start: 20000101
  3. CRESTOR [Concomitant]
     Dosage: DAILY DOSE UNKNOWN
     Route: 065

REACTIONS (1)
  - ILEUS [None]
